FAERS Safety Report 6028570-0 (Version None)
Quarter: 2008Q4

REPORT INFORMATION
  Report Type: 
  Country: None (occurrence: None)
  Receive Date: 20081222
  Receipt Date: 20081030
  Transmission Date: 20090506
  Serious: No
  Sender: FDA-Public Use
  Company Number: US-WYE-H06638708

PATIENT
  Age: 64 Year
  Sex: Female
  Weight: 68.1 kg

DRUGS (8)
  1. PRISTIQ [Suspect]
     Indication: DEPRESSION
     Dosage: 50 MG 1X PER 1 DAY, ORAL
     Route: 048
     Dates: start: 20081026
  2. DURGESIC (FENTANYL) [Concomitant]
  3. CATAFLAM [Concomitant]
  4. PLAQUENIL [Concomitant]
  5. PREDNISONE TAB [Concomitant]
  6. METHOTREXATE [Concomitant]
  7. NEXIUM [Concomitant]
  8. NEURONTIN [Concomitant]

REACTIONS (8)
  - AGITATION [None]
  - ANOREXIA [None]
  - CONDITION AGGRAVATED [None]
  - DEPRESSION [None]
  - INSOMNIA [None]
  - NAUSEA [None]
  - PSYCHOMOTOR HYPERACTIVITY [None]
  - UNEVALUABLE EVENT [None]
